FAERS Safety Report 6081250-8 (Version None)
Quarter: 2009Q1

REPORT INFORMATION
  Report Type: 
  Country: None (occurrence: None)
  Receive Date: 20090213
  Receipt Date: 20090205
  Transmission Date: 20090719
  Serious: Yes (Death)
  Sender: FDA-Public Use
  Company Number: US025408

PATIENT

DRUGS (1)
  1. TRISENOX [Suspect]
     Dosage: INTRAVENOUS DRIP
     Route: 041

REACTIONS (1)
  - DISEASE PROGRESSION [None]
